FAERS Safety Report 7808789-6 (Version None)
Quarter: 2011Q4

REPORT INFORMATION
  Report Type: 
  Country: None (occurrence: None)
  Receive Date: 20111012
  Receipt Date: 20110928
  Transmission Date: 20120403
  Serious: Yes (Hospitalization)
  Sender: FDA-Public Use
  Company Number: PHHO2011DE13465

PATIENT
  Sex: Female
  Weight: 75 kg

DRUGS (5)
  1. VALSARTAN [Concomitant]
     Indication: HYPERTENSION
     Dosage: 16 MG, QID
     Route: 048
     Dates: start: 20110301
  2. SIMVASTATIN [Concomitant]
     Indication: HYPERLIPIDAEMIA
     Dosage: 10 MG, UNK
     Route: 048
     Dates: start: 20080101
  3. LEVOTHYROXINE SODIUM [Concomitant]
     Indication: HYPOTHYROIDISM
     Dosage: 50 MG, QID
     Dates: start: 20090101
  4. CYCLOSPORINE [Suspect]
     Indication: SJOGREN'S SYNDROME
     Dosage: 150 MG, BID
     Route: 048
     Dates: start: 20110630, end: 20110706
  5. ASPIRIN [Concomitant]
     Indication: CARDIOVASCULAR EVENT PROPHYLAXIS
     Dosage: 50 MG, QID
     Route: 048
     Dates: start: 20090101

REACTIONS (2)
  - HYPERTENSIVE CRISIS [None]
  - DISEASE PROGRESSION [None]
